FAERS Safety Report 5044562-2 (Version None)
Quarter: 2006Q2

REPORT INFORMATION
  Report Type: 
  Country: None (occurrence: None)
  Receive Date: 20060629
  Receipt Date: 20060619
  Transmission Date: 20061013
  Serious: Yes (Hospitalization)
  Sender: FDA-Public Use
  Company Number: 2006077368

PATIENT
  Age: 61 Year
  Sex: Female

DRUGS (5)
  1. NEURONTIN [Suspect]
     Indication: NEURALGIA
     Dosage: 300 MG (FREQUENCY: ONCE), ORAL
     Route: 048
     Dates: start: 20060126, end: 20060126
  2. ATENOLOL [Suspect]
     Indication: ESSENTIAL HYPERTENSION
     Dosage: 100 MG (FREQUENCY: QD), ORAL
     Route: 048
     Dates: start: 20060121
  3. EUTHYRAL (LEVOTHYROXINE SODIUM, LIOTHYRONINE SODIUM) [Concomitant]
  4. EFFEXOR [Concomitant]
  5. LERCANIDIPINE [Concomitant]

REACTIONS (8)
  - ARTHRALGIA [None]
  - DIARRHOEA [None]
  - HYPERAESTHESIA [None]
  - JOINT STIFFNESS [None]
  - LEUKOCYTOCLASTIC VASCULITIS [None]
  - PALPABLE PURPURA [None]
  - PARAESTHESIA [None]
  - SKIN NECROSIS [None]
